FAERS Safety Report 5914780-7 (Version None)
Quarter: 2008Q4

REPORT INFORMATION
  Report Type: 
  Country: None (occurrence: None)
  Receive Date: 20081010
  Receipt Date: 20081003
  Transmission Date: 20090506
  Serious: Yes (Other)
  Sender: FDA-Public Use
  Company Number: CH-ROCHE-590366

PATIENT
  Age: 60 Year
  Sex: Female

DRUGS (2)
  1. CYMEVENE [Suspect]
     Route: 065
     Dates: start: 20080601
  2. MABCAMPATH [Concomitant]
     Dates: start: 20080501, end: 20080601

REACTIONS (1)
  - NASAL NECROSIS [None]
